APPROVED DRUG PRODUCT: DOXERCALCIFEROL
Active Ingredient: DOXERCALCIFEROL
Strength: 0.5MCG
Dosage Form/Route: CAPSULE;ORAL
Application: A091433 | Product #001
Applicant: HIKMA PHARMACEUTICALS USA INC
Approved: Sep 23, 2011 | RLD: No | RS: No | Type: DISCN